FAERS Safety Report 4432687-1 (Version None)
Quarter: 2004Q3

REPORT INFORMATION
  Report Type: 
  Country: None (occurrence: None)
  Receive Date: 20040820
  Receipt Date: 20040804
  Transmission Date: 20050211
  Serious: Yes (Hospitalization)
  Sender: FDA-Public Use
  Company Number: US_0407104441

PATIENT
  Age: 63 Year
  Sex: Female
  Weight: 89 kg

DRUGS (6)
  1. GEMCITABINE HYDROCHLORIDE-IV (GEMCITABINE) [Suspect]
     Indication: NON-HODGKIN'S LYMPHOMA
     Dosage: 750 MG/M2 OTHER
     Route: 050
     Dates: start: 20040618, end: 20040622
  2. VINCRISTINE [Suspect]
     Indication: NON-HODGKIN'S LYMPHOMA
     Dosage: 4 MG/M2 OTHER
     Route: 050
     Dates: start: 20040618, end: 20040618
  3. PREDNISONE [Suspect]
     Indication: NON-HODGKIN'S LYMPHOMA
     Dosage: 100 MG
     Dates: start: 20040618, end: 20040622
  4. CYCLOPHOSPHAMIDE [Suspect]
     Indication: NON-HODGKIN'S LYMPHOMA
     Dosage: 750 MG/M2 OTHER
     Route: 050
     Dates: start: 20040618, end: 20040618
  5. ADRIAMYCIN PFS [Suspect]
     Indication: NON-HODGKIN'S LYMPHOMA
     Dosage: 50 MG/M2 OTHER
     Route: 048
     Dates: start: 20040618, end: 20040618
  6. NEULASTA [Concomitant]

REACTIONS (3)
  - ACQUIRED DIAPHRAGMATIC EVENTRATION [None]
  - HAEMOGLOBIN DECREASED [None]
  - RESTRICTIVE PULMONARY DISEASE [None]
